FAERS Safety Report 5754638-X (Version None)
Quarter: 2008Q2

REPORT INFORMATION
  Report Type: 
  Country: None (occurrence: None)
  Receive Date: 20080530
  Receipt Date: 20080520
  Transmission Date: 20081010
  Serious: Yes (Hospitalization)
  Sender: FDA-Public Use
  Company Number: US-PFIZER INC-2008043647

PATIENT
  Sex: Male
  Weight: 107 kg

DRUGS (12)
  1. ZYVOX [Suspect]
     Indication: ERYTHEMA
     Route: 042
     Dates: start: 20080515, end: 20080516
  2. ZYVOX [Suspect]
     Indication: INFLAMMATION
  3. ZYVOX [Suspect]
     Indication: PAIN
  4. ZYVOX [Suspect]
     Indication: GANGRENE
  5. CIPROFLOXACIN HCL [Suspect]
     Indication: ERYTHEMA
  6. CIPROFLOXACIN HCL [Suspect]
     Indication: INFLAMMATION
  7. CIPROFLOXACIN HCL [Suspect]
     Indication: PAIN
  8. CIPROFLOXACIN HCL [Suspect]
     Indication: GANGRENE
  9. ACTOS [Concomitant]
     Indication: DIABETES MELLITUS
  10. GLIPIZIDE [Concomitant]
     Indication: DIABETES MELLITUS
  11. LISINOPRIL [Concomitant]
     Indication: RENAL DISORDER
  12. HYTRIN [Concomitant]

REACTIONS (2)
  - GANGRENE [None]
  - INFLAMMATION [None]
